FAERS Safety Report 6286523-1 (Version None)
Quarter: 2009Q3

REPORT INFORMATION
  Report Type: 
  Country: None (occurrence: None)
  Receive Date: 20090727
  Receipt Date: 20090727
  Transmission Date: 20100115
  Serious: Yes (Other)
  Sender: FDA-Public Use
  Company Number: None

PATIENT
  Age: 32 Year
  Sex: Male
  Weight: 136.0791 kg

DRUGS (1)
  1. HEALTH E-CIGARETTE MARLBORO FLAVOR - MEDIUM HEALTH E-CIGARETTE [Suspect]
     Dosage: 18 MG REGULARLY PO
     Route: 048
     Dates: start: 20090709, end: 20090724

REACTIONS (1)
  - NO ADVERSE EVENT [None]
